FAERS Safety Report 4331790-4 (Version None)
Quarter: 2004Q2

REPORT INFORMATION
  Report Type: 
  Country: None (occurrence: None)
  Receive Date: 20040405
  Receipt Date: 20030818
  Transmission Date: 20050107
  Serious: No
  Sender: FDA-Public Use
  Company Number: US-GLAXOSMITHKLINE-A0422293A

PATIENT
  Age: 78 Year
  Sex: Female

DRUGS (3)
  1. FLOVENT [Suspect]
     Indication: ASTHMA
     Route: 055
  2. SEREVENT [Concomitant]
  3. BETA BLOCKER [Concomitant]

REACTIONS (2)
  - COUGH [None]
  - HOARSENESS [None]
